FAERS Safety Report 18304739 (Version 1)
Quarter: 2020Q3

REPORT INFORMATION
  Report Type: Spontaneous
  Country: DE (occurrence: DE)
  Receive Date: 20200924
  Receipt Date: 20200924
  Transmission Date: 20201103
  Serious: Yes (Other)
  Sender: FDA-Public Use
  Company Number: DE-AUROBINDO-AUR-APL-2020-049140

PATIENT
  Age: 23 Year
  Sex: Female
  Weight: 90 kg

DRUGS (5)
  1. RIZATRIPTAN NEURAXPHARM [Concomitant]
     Active Substance: RIZATRIPTAN BENZOATE
     Indication: MIGRAINE
     Dosage: 1 DOSAGE FORM (ON DEMAND)
     Route: 048
     Dates: start: 202008
  2. EBASTEL [Concomitant]
     Active Substance: EBASTINE
     Indication: FOOD ALLERGY
     Dosage: 2 DOSAGE FORM (ON DEMMAND)
     Route: 048
     Dates: start: 201609
  3. L?THYROXIN 1A PHARMA [Concomitant]
     Active Substance: LEVOTHYROXINE SODIUM
     Indication: AUTOIMMUNE THYROIDITIS
     Dosage: 1 DOSAGE FORM, ONCE A DAY
     Route: 048
     Dates: start: 201809
  4. EBASTEL [Concomitant]
     Active Substance: EBASTINE
     Indication: ALLERGY TO ANIMAL
  5. SERTRALIN PUREN 100 MG FILM COATED TABLETS [Suspect]
     Active Substance: SERTRALINE HYDROCHLORIDE
     Indication: DEPRESSION
     Dosage: 1 DOSAGE FORM, ONCE A DAY
     Route: 048
     Dates: start: 202008

REACTIONS (4)
  - Angina pectoris [Not Recovered/Not Resolved]
  - Discomfort [Not Recovered/Not Resolved]
  - Tinnitus [Not Recovered/Not Resolved]
  - Asthenia [Not Recovered/Not Resolved]

NARRATIVE: CASE EVENT DATE: 202009
